FAERS Safety Report 7885670-8 (Version None)
Quarter: 2011Q4

REPORT INFORMATION
  Report Type: 
  Country: None (occurrence: None)
  Receive Date: 20111102
  Receipt Date: 20110624
  Transmission Date: 20120403
  Serious: No
  Sender: FDA-Public Use
  Company Number: US-AMGEN-USASP2011032641

PATIENT
  Sex: Female

DRUGS (5)
  1. METHOTREXATE [Concomitant]
  2. SIMVASTATIN [Concomitant]
     Dosage: UNK
  3. BUPROPION HCL [Concomitant]
  4. BONIVA [Concomitant]
  5. ENBREL [Suspect]
     Indication: RHEUMATOID ARTHRITIS
     Dosage: 50 MG, QWK
     Dates: start: 20110601

REACTIONS (2)
  - APHASIA [None]
  - SPEECH DISORDER [None]
